FAERS Safety Report 21494642 (Version 1)
Quarter: 2022Q4

REPORT INFORMATION
  Report Type: Report from Study
  Country: US (occurrence: US)
  Receive Date: 20221021
  Receipt Date: 20221021
  Transmission Date: 20230112
  Serious: No
  Sender: FDA-Public Use
  Company Number: US-ABBVIE-4166613

PATIENT
  Sex: Male

DRUGS (4)
  1. SKYRIZI [Suspect]
     Active Substance: RISANKIZUMAB-RZAA
     Indication: Psoriatic arthropathy
     Route: 058
     Dates: start: 20210805, end: 20210831
  2. Johnson and Johnson [Concomitant]
     Indication: COVID-19 immunisation
     Dosage: 1ST DOSE, FREQUENCY: 1 IN 1 ONCE
     Route: 030
  3. Johnson and Johnson [Concomitant]
     Indication: COVID-19 immunisation
     Dosage: 2ND DOSE, FREQUENCY: 1 IN 1 ONCE
     Route: 030
  4. Johnson and Johnson [Concomitant]
     Indication: COVID-19 immunisation
     Dosage: 3RD OR BOOSTER DOSE, FREQUENCY: 1 IN 1 ONCE
     Route: 030

REACTIONS (2)
  - Large intestine infection [Recovering/Resolving]
  - Gastrointestinal pain [Unknown]
